FAERS Safety Report 18378003 (Version 2)
Quarter: 2020Q4

REPORT INFORMATION
  Report Type: Spontaneous
  Country: US (occurrence: US)
  Receive Date: 20201013
  Receipt Date: 20201119
  Transmission Date: 20210114
  Serious: Yes (Hospitalization)
  Sender: FDA-Public Use
  Company Number: US-ASTRAZENECA-2020SF30828

PATIENT
  Age: 19941 Day
  Sex: Female
  Weight: 59 kg

DRUGS (6)
  1. ALBUTEROL SULFATE HFA [Concomitant]
     Active Substance: ALBUTEROL SULFATE
     Indication: DYSPNOEA
     Dosage: 2 PUFFS BY MOUTH EVERY 4 HOURS
  2. PULMICORT FLEXHALER [Suspect]
     Active Substance: BUDESONIDE
     Indication: DYSPNOEA
     Route: 055
     Dates: start: 20201002
  3. ALBUTEROL SULFATE HFA [Concomitant]
     Active Substance: ALBUTEROL SULFATE
     Indication: PHARYNGEAL SWELLING
     Dosage: 2 PUFFS BY MOUTH EVERY 4 HOURS
  4. PULMICORT FLEXHALER [Suspect]
     Active Substance: BUDESONIDE
     Indication: STRIDOR
     Route: 055
     Dates: start: 20201002
  5. ALBUTEROL SULFATE HFA [Concomitant]
     Active Substance: ALBUTEROL SULFATE
     Indication: STRIDOR
     Dosage: 2 PUFFS BY MOUTH EVERY 4 HOURS
  6. PULMICORT FLEXHALER [Suspect]
     Active Substance: BUDESONIDE
     Indication: PHARYNGEAL SWELLING
     Route: 055
     Dates: start: 20201002

REACTIONS (4)
  - Product use issue [Unknown]
  - Dyspnoea [Not Recovered/Not Resolved]
  - Drug ineffective [Unknown]
  - Device defective [Unknown]

NARRATIVE: CASE EVENT DATE: 20201002
